FAERS Safety Report 8050298-6 (Version None)
Quarter: 2012Q1

REPORT INFORMATION
  Report Type: 
  Country: None (occurrence: None)
  Receive Date: 20120111
  Receipt Date: 20100910
  Transmission Date: 20120608
  Serious: Yes (Other)
  Sender: FDA-Public Use
  Company Number: 2010-04948

PATIENT
  Age: 35 Year
  Sex: Female

DRUGS (2)
  1. ADACEL (TD2CP) [Suspect]
     Indication: IMMUNISATION
     Dosage: I.M
     Route: 030
     Dates: start: 20100908, end: 20100908
  2. TUBERSOL [Suspect]
     Indication: TUBERCULIN TEST
     Dosage: I.D.
     Route: 023
     Dates: start: 20100908, end: 20100908

REACTIONS (3)
  - PYREXIA [None]
  - PAIN [None]
  - HEADACHE [None]
